FAERS Safety Report 18386796 (Version 1)
Quarter: 2020Q4

REPORT INFORMATION
  Report Type: Spontaneous
  Country: US (occurrence: US)
  Receive Date: 20201015
  Receipt Date: 20201015
  Transmission Date: 20210114
  Serious: No
  Sender: FDA-Public Use
  Company Number: None

PATIENT
  Age: 70 Year
  Sex: Female
  Weight: 69.75 kg

DRUGS (6)
  1. CELECOXIB. [Suspect]
     Active Substance: CELECOXIB
     Indication: OSTEOARTHRITIS
     Dosage: ?          QUANTITY:1 CAPSULE(S);?
     Route: 048
     Dates: start: 20200815
  2. CELECOXIB. [Suspect]
     Active Substance: CELECOXIB
     Indication: SPINAL STENOSIS
     Dosage: ?          QUANTITY:1 CAPSULE(S);?
     Route: 048
     Dates: start: 20200815
  3. GABAPENTIN. [Concomitant]
     Active Substance: GABAPENTIN
  4. LIDOCAINE. [Concomitant]
     Active Substance: LIDOCAINE
  5. CYCLOBENZAPRINE. [Concomitant]
     Active Substance: CYCLOBENZAPRINE
  6. BENADRYL [Concomitant]
     Active Substance: DIPHENHYDRAMINE HYDROCHLORIDE

REACTIONS (4)
  - Product substitution issue [None]
  - Product prescribing issue [None]
  - Drug ineffective [None]
  - Therapeutic response decreased [None]

NARRATIVE: CASE EVENT DATE: 20200815
